FAERS Safety Report 5615984-3 (Version None)
Quarter: 2008Q1

REPORT INFORMATION
  Report Type: 
  Country: None (occurrence: None)
  Receive Date: 20080206
  Receipt Date: 20080122
  Transmission Date: 20080703
  Serious: No
  Sender: FDA-Public Use
  Company Number: US-BOEHRINGER INGELHEIM GMBH, GERMANY-2007-BP-24588BP

PATIENT
  Age: 63 Year
  Sex: Male
  Weight: 103 kg

DRUGS (2)
  1. SPIRIVA [Suspect]
     Indication: CHRONIC OBSTRUCTIVE PULMONARY DISEASE
     Route: 055
     Dates: start: 20070919, end: 20071115
  2. ALBUTEROL [Concomitant]

REACTIONS (1)
  - CHEST PAIN [None]
